FAERS Safety Report 4723351-X (Version None)
Quarter: 2005Q3

REPORT INFORMATION
  Report Type: 
  Country: None (occurrence: None)
  Receive Date: 20050719
  Receipt Date: 20050316
  Transmission Date: 20060218
  Serious: Yes (Hospitalization)
  Sender: FDA-Public Use
  Company Number: 2005BI006045

PATIENT
  Age: 48 Year
  Sex: Male
  Weight: 104.3273 kg

DRUGS (10)
  1. AVONEX [Suspect]
     Indication: MULTIPLE SCLEROSIS
     Dosage: 30 UG; QW; IM
     Route: 030
     Dates: start: 20040301
  2. ZANAFLEX [Concomitant]
  3. FLEXERIL [Concomitant]
  4. LOPRESSOR [Concomitant]
  5. EFFEXOR [Concomitant]
  6. PERCOCET [Concomitant]
  7. DURAGESIC-100 [Concomitant]
  8. ACIPHEX [Concomitant]
  9. CARAFATE [Concomitant]
  10. GUAIFENESIN [Concomitant]

REACTIONS (8)
  - ABDOMINAL PAIN UPPER [None]
  - COGNITIVE DISORDER [None]
  - CONSTIPATION [None]
  - DYSURIA [None]
  - HEPATIC ENZYME INCREASED [None]
  - HYPOTENSION [None]
  - MULTIPLE SCLEROSIS RELAPSE [None]
  - PHARYNGOLARYNGEAL PAIN [None]
